FAERS Safety Report 7135923-6 (Version None)
Quarter: 2010Q4

REPORT INFORMATION
  Report Type: 
  Country: None (occurrence: None)
  Receive Date: 20101204
  Receipt Date: 20101118
  Transmission Date: 20110411
  Serious: Yes (Hospitalization, Other)
  Sender: FDA-Public Use
  Company Number: US-BAYER-201041946NA

PATIENT

DRUGS (1)
  1. NEXAVAR [Suspect]
     Dosage: 400 MG AM; 200 MG PM
     Route: 048
     Dates: start: 20101026

REACTIONS (2)
  - DISEASE PROGRESSION [None]
  - HOSPITALISATION [None]
